FAERS Safety Report 15392794 (Version 2)
Quarter: 2018Q3

REPORT INFORMATION
  Report Type: Spontaneous
  Country: FR (occurrence: FR)
  Receive Date: 20180917
  Receipt Date: 20180919
  Transmission Date: 20181010
  Serious: Yes (Life-Threatening, Other)
  Sender: FDA-Public Use
  Company Number: FR-PFIZER INC-2018371962

PATIENT
  Age: 47 Year
  Sex: Male

DRUGS (13)
  1. CYTARABINE. [Suspect]
     Active Substance: CYTARABINE
     Dosage: 200 MG/M2, 1X/DAY
     Route: 042
     Dates: start: 20141114, end: 20141117
  2. ETOPOSIDE. [Suspect]
     Active Substance: ETOPOSIDE
     Indication: FOLLICLE CENTRE LYMPHOMA, FOLLICULAR GRADE I, II, III STAGE IV
     Dosage: 100 MG/M2, UNK
     Route: 042
     Dates: start: 2000, end: 2001
  3. CYTARABINE. [Suspect]
     Active Substance: CYTARABINE
     Indication: FOLLICLE CENTRE LYMPHOMA, FOLLICULAR GRADE I, II, III STAGE IV
     Dosage: 200, UNK
     Route: 042
     Dates: start: 201409, end: 201410
  4. INTRON A [Suspect]
     Active Substance: INTERFERON ALFA-2B
     Indication: FOLLICLE CENTRE LYMPHOMA, FOLLICULAR GRADE I, II, III STAGE IV
     Dosage: 5 MILLION IU, X 3/ WEEK
     Route: 058
     Dates: start: 2000, end: 2001
  5. CARMUSTINE [Suspect]
     Active Substance: CARMUSTINE
     Indication: FOLLICLE CENTRE LYMPHOMA, FOLLICULAR GRADE I, II, III STAGE IV
     Dosage: 300 MG/M2, UNK
     Route: 042
     Dates: start: 20141113, end: 20141113
  6. ETOPOSIDE. [Suspect]
     Active Substance: ETOPOSIDE
     Dosage: 200 MG/M2, 1X/DAY
     Route: 042
     Dates: start: 20141114, end: 20171117
  7. MABTHERA [Suspect]
     Active Substance: RITUXIMAB
     Dosage: 375 MG/M2, UNK
     Route: 042
     Dates: start: 201409, end: 201410
  8. CYCLOPHOSPHAMIDE. [Suspect]
     Active Substance: CYCLOPHOSPHAMIDE
     Indication: FOLLICLE CENTRE LYMPHOMA, FOLLICULAR GRADE I, II, III STAGE IV
     Dosage: 600 MG/M2, ONCE EVERY 28 DAYS
     Route: 042
     Dates: start: 2000, end: 2001
  9. BENDAMUSTINE HYDROCHLORIDE. [Suspect]
     Active Substance: BENDAMUSTINE HYDROCHLORIDE
     Indication: FOLLICLE CENTRE LYMPHOMA, FOLLICULAR GRADE I, II, III STAGE IV
     Dosage: 70 MG/M2, UNK
     Route: 042
     Dates: start: 201309, end: 201402
  10. MABTHERA [Suspect]
     Active Substance: RITUXIMAB
     Indication: FOLLICLE CENTRE LYMPHOMA, FOLLICULAR GRADE I, II, III STAGE IV
     Dosage: 375 MG/M2, UNK
     Route: 042
     Dates: start: 201309, end: 201402
  11. OXALIPLATIN. [Suspect]
     Active Substance: OXALIPLATIN
     Indication: FOLLICLE CENTRE LYMPHOMA, FOLLICULAR GRADE I, II, III STAGE IV
     Dosage: 100 MG/M2, UNK
     Route: 042
     Dates: start: 201409, end: 201410
  12. DOXORUBICIN HCL [Suspect]
     Active Substance: DOXORUBICIN HYDROCHLORIDE
     Indication: FOLLICLE CENTRE LYMPHOMA, FOLLICULAR GRADE I, II, III STAGE IV
     Dosage: 25 MG/M2, ONCE EVERY 28 DAYS
     Route: 042
     Dates: start: 2000, end: 2001
  13. MELPHALAN. [Suspect]
     Active Substance: MELPHALAN
     Indication: FOLLICLE CENTRE LYMPHOMA, FOLLICULAR GRADE I, II, III STAGE IV
     Dosage: 140 MG/M2, UNK
     Route: 042
     Dates: start: 20141118, end: 20141118

REACTIONS (2)
  - Myelodysplastic syndrome [Not Recovered/Not Resolved]
  - Second primary malignancy [Not Recovered/Not Resolved]

NARRATIVE: CASE EVENT DATE: 201808
